FAERS Safety Report 25406227 (Version 3)
Quarter: 2025Q2

REPORT INFORMATION
  Report Type: Spontaneous
  Country: CN (occurrence: CN)
  Receive Date: 20250606
  Receipt Date: 20250613
  Transmission Date: 20250716
  Serious: Yes (Death, Life-Threatening, Hospitalization)
  Sender: BAYER HEALTHCARE PHARMACEUTICALS INC.
  Company Number: CN-BAYER-2025A074929

PATIENT
  Age: 33 Year
  Sex: Male
  Weight: 80 kg

DRUGS (9)
  1. ULTRAVIST [Suspect]
     Active Substance: IOPROMIDE
     Indication: Angiogram peripheral
     Route: 040
     Dates: start: 20250531, end: 20250531
  2. ULTRAVIST [Suspect]
     Active Substance: IOPROMIDE
     Indication: Tibia fracture
  3. ULTRAVIST [Suspect]
     Active Substance: IOPROMIDE
     Indication: Fibula fracture
  4. ULTRAVIST [Suspect]
     Active Substance: IOPROMIDE
     Indication: Vascular injury
  5. ULTRAVIST [Suspect]
     Active Substance: IOPROMIDE
     Indication: Angiogram peripheral
     Route: 040
     Dates: start: 20250531, end: 20250531
  6. ULTRAVIST [Suspect]
     Active Substance: IOPROMIDE
     Indication: Tibia fracture
  7. ULTRAVIST [Suspect]
     Active Substance: IOPROMIDE
     Indication: Fibula fracture
  8. ULTRAVIST [Suspect]
     Active Substance: IOPROMIDE
     Indication: Vascular injury
  9. DEXAMETHASONE SODIUM PHOSPHATE [Concomitant]
     Active Substance: DEXAMETHASONE SODIUM PHOSPHATE
     Indication: Allergy prophylaxis
     Dosage: 1 DF, QD
     Route: 042
     Dates: start: 20250531, end: 20250531

REACTIONS (17)
  - Anaphylactic shock [Fatal]
  - Vomiting [None]
  - Muscle spasms [None]
  - Tremor [None]
  - Chest discomfort [None]
  - Nausea [None]
  - Muscle twitching [None]
  - Coma [None]
  - Pupillary reflex impaired [None]
  - Eyelid oedema [None]
  - Flushing [None]
  - Heart rate decreased [Recovered/Resolved]
  - Blood pressure decreased [None]
  - Cardiac arrest [None]
  - Ventricular fibrillation [Not Recovered/Not Resolved]
  - Respiratory arrest [None]
  - Heart rate increased [Recovered/Resolved]

NARRATIVE: CASE EVENT DATE: 20250531
